FAERS Safety Report 4411523-3 (Version None)
Quarter: 2004Q2

REPORT INFORMATION
  Report Type: 
  Country: None (occurrence: None)
  Receive Date: 20040630
  Receipt Date: 20040316
  Transmission Date: 20050107
  Serious: No
  Sender: FDA-Public Use
  Company Number: 04P-163-0253735-00

PATIENT
  Age: 55 Year
  Sex: Male
  Weight: 64.4108 kg

DRUGS (6)
  1. HUMIRA [Suspect]
     Indication: RHEUMATOID ARTHRITIS
     Dosage: 40 MG, 1 IN 1 WK, SUBCUTANEOUS
     Route: 058
     Dates: start: 20030501
  2. PREDNISONE [Concomitant]
  3. PAROXETINE HYDROCHLORIDE [Concomitant]
  4. HYDROCODONE [Concomitant]
  5. NAPROXEN [Concomitant]
  6. FENTANYL [Concomitant]

REACTIONS (2)
  - TOOTH INFECTION [None]
  - TOOTHACHE [None]
